FAERS Safety Report 9849248 (Version 1)
Quarter: 2013Q4

REPORT INFORMATION
  Report Type: Spontaneous
  Country: US (occurrence: None)
  Receive Date: 20131223
  Receipt Date: 20131223
  Transmission Date: 20140711
  Serious: Yes (Hospitalization)
  Sender: FDA-Public Use
  Company Number: CABO-13003472

PATIENT
  Age: 66 Year
  Sex: Male
  Weight: 106 kg

DRUGS (9)
  1. COMETRIQ (CABOZANTINIB) CAPSULE [Suspect]
     Indication: PROSTATE CANCER
     Route: 048
     Dates: start: 20130726, end: 20131005
  2. DILTIAZEM (DILTIAZEM) [Concomitant]
  3. LISINOPRIL (LISINOPRIL) [Concomitant]
  4. GLIMEPIRIDE (GLIMEPIRIDE) [Concomitant]
  5. FOLIC ACID (FOLIC ACID) [Concomitant]
  6. ATORVASTATIN (ATORVASTATIN) [Concomitant]
  7. GABAPENTIN (GABAPENTIN) [Concomitant]
  8. VITAMIN B (VITAMIN B COMPLEX) [Concomitant]
  9. LANTUS (INSULIN GLARGINE) [Concomitant]

REACTIONS (2)
  - Pancreatitis acute [None]
  - Off label use [None]
